FAERS Safety Report 18306391 (Version 1)
Quarter: 2020Q3

REPORT INFORMATION
  Report Type: Other
  Country: US (occurrence: US)
  Receive Date: 20200923
  Receipt Date: 20200923
  Transmission Date: 20201103
  Serious: Yes (Hospitalization)
  Sender: FDA-Public Use
  Company Number: US-ROCHE-2677812

PATIENT
  Age: 58 Year
  Sex: Male
  Weight: 136.2 kg

DRUGS (3)
  1. TYLENOL [Concomitant]
     Active Substance: ACETAMINOPHEN
  2. OCREVUS [Suspect]
     Active Substance: OCRELIZUMAB
     Indication: RELAPSING MULTIPLE SCLEROSIS
     Route: 042
  3. BENADRYL [Concomitant]
     Active Substance: DIPHENHYDRAMINE HYDROCHLORIDE

REACTIONS (6)
  - Heart rate irregular [Unknown]
  - Hepatic function abnormal [Unknown]
  - Escherichia infection [Unknown]
  - Dyspnoea [Unknown]
  - Illness [Unknown]
  - Pharyngeal swelling [Unknown]

NARRATIVE: CASE EVENT DATE: 20180313
